FAERS Safety Report 8480681-6 (Version None)
Quarter: 2012Q3

REPORT INFORMATION
  Report Type: 
  Country: None (occurrence: None)
  Receive Date: 20120702
  Receipt Date: 20120629
  Transmission Date: 20120928
  Serious: No
  Sender: FDA-Public Use
  Company Number: US-PFIZER INC-2012157034

PATIENT
  Sex: Female
  Weight: 82.1 kg

DRUGS (10)
  1. KLONOPIN [Concomitant]
     Dosage: 1 MG, 3X/DAY
  2. LYRICA [Suspect]
  3. METFORMIN [Concomitant]
     Indication: TYPE 2 DIABETES MELLITUS
     Dosage: UNK
  4. AMLODIPINE [Concomitant]
     Indication: HYPERTENSION
     Dosage: UNK
  5. LYRICA [Suspect]
     Indication: PAIN IN EXTREMITY
  6. LYRICA [Suspect]
     Indication: LIMB INJURY
  7. LOSARTAN [Concomitant]
     Indication: HYPERTENSION
     Dosage: UNK
  8. LYRICA [Suspect]
  9. LYRICA [Suspect]
     Indication: GAIT DISTURBANCE
     Dosage: 75 MG, 2X/DAY
     Route: 048
     Dates: start: 20120629
  10. CYMBALTA [Concomitant]
     Dosage: UNK, 1X/DAY

REACTIONS (2)
  - DIZZINESS [None]
  - FEELING DRUNK [None]
